FAERS Safety Report 21266513 (Version 6)
Quarter: 2022Q4

REPORT INFORMATION
  Report Type: Report from Study
  Country: AU (occurrence: None)
  Receive Date: 20220829
  Receipt Date: 20221213
  Transmission Date: 20230113
  Serious: Yes (Hospitalization)
  Sender: FDA-Public Use
  Company Number: AU-Eisai Medical Research-EC-2022-122177

PATIENT
  Age: 60 Year
  Sex: Male
  Weight: 52.9 kg

DRUGS (9)
  1. LENVATINIB [Suspect]
     Active Substance: LENVATINIB
     Indication: Renal cell carcinoma
     Dosage: STARTING DOSE AT 20 MG, (FLUCTUATED DOSE)
     Route: 048
     Dates: start: 20211209, end: 20220810
  2. LENVATINIB [Suspect]
     Active Substance: LENVATINIB
     Route: 048
     Dates: start: 20220811, end: 20220820
  3. LENVATINIB [Suspect]
     Active Substance: LENVATINIB
     Route: 048
     Dates: start: 20220915
  4. QUAVONLIMAB [Suspect]
     Active Substance: QUAVONLIMAB
     Indication: Renal cell carcinoma
     Dosage: QUAVONLIMAB [MK-1308] 25 MG [+] PEMBROLIZUMAB [MK-3475] 400 MG
     Route: 042
     Dates: start: 20211209, end: 20220701
  5. PEMBROLIZUMAB [Suspect]
     Active Substance: PEMBROLIZUMAB
     Dosage: QUAVONLIMAB [MK-1308] 25 MG [+] PEMBROLIZUMAB [MK-3475] 400 MG
     Route: 042
     Dates: start: 20220811
  6. PREDNISOLONE [Concomitant]
     Active Substance: PREDNISOLONE
     Dates: start: 20220610
  7. PANTOPRAZOLE [Concomitant]
     Active Substance: PANTOPRAZOLE
     Dates: start: 20220519
  8. CYCLIZINE [Concomitant]
     Active Substance: CYCLIZINE
     Dates: start: 20220609, end: 20220820
  9. PANCRELIPASE [Concomitant]
     Active Substance: PANCRELIPASE
     Dates: start: 20220609, end: 20220823

REACTIONS (1)
  - Diarrhoea [Recovered/Resolved]

NARRATIVE: CASE EVENT DATE: 20220702
